FAERS Safety Report 8115935-6 (Version None)
Quarter: 2012Q1

REPORT INFORMATION
  Report Type: 
  Country: None (occurrence: None)
  Receive Date: 20120206
  Receipt Date: 20120130
  Transmission Date: 20120608
  Serious: Yes (Death)
  Sender: FDA-Public Use
  Company Number: IT-GILEAD-2012-0050242

PATIENT
  Sex: Male

DRUGS (14)
  1. RANOLAZINE [Suspect]
     Indication: ANGINA PECTORIS
     Dosage: 375 MG, BID
     Route: 048
     Dates: start: 20111031
  2. ACETAMINOPHEN [Concomitant]
     Indication: PAIN
     Dosage: 4 G, QD
     Route: 048
     Dates: start: 20111024
  3. FERROUS SULFATE TAB [Concomitant]
     Indication: ANAEMIA
     Dosage: 400 MG, QD
     Route: 048
     Dates: start: 20111027
  4. DILTIAZEM HCL [Concomitant]
     Indication: ANGINA PECTORIS
     Dosage: 240 MG,
     Route: 048
     Dates: start: 20111103, end: 20111105
  5. LANSOPRAZOLE [Concomitant]
     Indication: PRODUCT USED FOR UNKNOWN INDICATION
     Dosage: 30 MG, QD
     Route: 048
     Dates: start: 20111010
  6. CLOPIDOGREL [Concomitant]
     Indication: MYOCARDIAL INFARCTION
     Dosage: 75 MG, QD
     Route: 048
     Dates: start: 20111010
  7. ISOSORBIDE DINITRATE [Concomitant]
     Indication: ANGINA PECTORIS
     Dosage: 120 MG, QD
     Route: 048
     Dates: start: 20111011
  8. ASPIRIN [Concomitant]
     Indication: MYOCARDIAL INFARCTION
     Dosage: 75 MG, BID
     Route: 048
     Dates: start: 20111010
  9. AMLODIPINE [Concomitant]
     Indication: HYPERTENSION
     Dosage: 5 MG, QD
     Route: 048
     Dates: start: 20111104
  10. NICORANDIL [Concomitant]
     Indication: ANGINA PECTORIS
     Dosage: 60 MG, BID
     Route: 048
     Dates: start: 20111026
  11. SIMVASTATIN [Concomitant]
     Indication: HYPERCHOLESTEROLAEMIA
     Dosage: 40 MG, BID
     Route: 048
     Dates: start: 20101110
  12. LACTULOSE [Concomitant]
     Indication: CONSTIPATION
     Dosage: 30 MG, QD
     Route: 048
     Dates: start: 20111010
  13. SENNA                              /00142201/ [Concomitant]
     Indication: CONSTIPATION
     Route: 048
     Dates: start: 20111017
  14. FORTISIP [Concomitant]
     Indication: MEDICAL DIET
     Route: 048
     Dates: start: 20111107

REACTIONS (4)
  - DIZZINESS [None]
  - CHEST PAIN [None]
  - FALL [None]
  - ORTHOSTATIC HYPOTENSION [None]
